FAERS Safety Report 10470466 (Version 12)
Quarter: 2018Q4

REPORT INFORMATION
  Report Type: Report from Study
  Country: US (occurrence: US)
  Receive Date: 20140923
  Receipt Date: 20181210
  Transmission Date: 20190204
  Serious: Yes (Hospitalization, Other)
  Sender: FDA-Public Use
  Company Number: US-SA-2014SA106861

PATIENT
  Age: 64 Year
  Sex: Female

DRUGS (7)
  1. TERIFLUNOMIDE. [Suspect]
     Active Substance: TERIFLUNOMIDE
     Dosage: 14 MG,QD
     Route: 048
     Dates: start: 20150424
  2. CIPROFLOXACIN. [Suspect]
     Active Substance: CIPROFLOXACIN
     Dosage: 500 MG,BID
     Route: 065
  3. TERIFLUNOMIDE. [Suspect]
     Active Substance: TERIFLUNOMIDE
     Dosage: 14 MG,QD
     Route: 048
     Dates: start: 20140917, end: 20150212
  4. ASPIRIN 81 [Concomitant]
     Active Substance: ASPIRIN
  5. NITROFURANTOIN. [Concomitant]
     Active Substance: NITROFURANTOIN
     Indication: URINARY TRACT INFECTION
     Dosage: UNK
  6. TERIFLUNOMIDE. [Suspect]
     Active Substance: TERIFLUNOMIDE
     Indication: MULTIPLE SCLEROSIS
     Dosage: 14 MG,QD
     Route: 048
     Dates: start: 20140722, end: 20140910
  7. TERIFLUNOMIDE. [Suspect]
     Active Substance: TERIFLUNOMIDE
     Dosage: 14 MG,QD
     Route: 048
     Dates: start: 20150604

REACTIONS (32)
  - Myocardial necrosis marker increased [Unknown]
  - Pain in jaw [Unknown]
  - Blood pressure increased [Unknown]
  - Cardiomyopathy [Not Recovered/Not Resolved]
  - Urinary tract infection [Recovered/Resolved]
  - Haemoglobin increased [Unknown]
  - Palpitations [Unknown]
  - Asthenia [Not Recovered/Not Resolved]
  - Neuropathy peripheral [Unknown]
  - Gait disturbance [Unknown]
  - Bladder discomfort [Not Recovered/Not Resolved]
  - Discomfort [Unknown]
  - Dyspepsia [Unknown]
  - Diastolic dysfunction [Unknown]
  - Loss of personal independence in daily activities [Not Recovered/Not Resolved]
  - Dyspnoea [Not Recovered/Not Resolved]
  - Carotid artery stenosis [Not Recovered/Not Resolved]
  - Bladder disorder [Unknown]
  - Haematocrit increased [Unknown]
  - Malaise [Not Recovered/Not Resolved]
  - Chest pain [Unknown]
  - Pain in extremity [Unknown]
  - Pneumonia [Not Recovered/Not Resolved]
  - Cardiac failure congestive [Not Recovered/Not Resolved]
  - Dyspnoea [Unknown]
  - Fatigue [Unknown]
  - Ejection fraction decreased [Not Recovered/Not Resolved]
  - Oxygen saturation decreased [Unknown]
  - Restrictive pulmonary disease [Unknown]
  - Balance disorder [Not Recovered/Not Resolved]
  - Vertigo [Recovered/Resolved]
  - Product dose omission [Unknown]

NARRATIVE: CASE EVENT DATE: 201409
